FAERS Safety Report 10083192 (Version 2)
Quarter: 2014Q2

REPORT INFORMATION
  Report Type: Report from Study
  Country: DE (occurrence: DE)
  Receive Date: 20140417
  Receipt Date: 20140417
  Transmission Date: 20141212
  Serious: Yes (Hospitalization)
  Sender: FDA-Public Use
  Company Number: DE-ROCHE-1338305

PATIENT
  Age: 59 Year
  Sex: Male

DRUGS (9)
  1. RITUXIMAB [Suspect]
     Indication: RHEUMATOID ARTHRITIS
     Route: 065
     Dates: start: 20130514
  2. METHOTREXAT [Suspect]
     Indication: RHEUMATOID ARTHRITIS
     Route: 065
  3. PREDNISOLON [Concomitant]
  4. MARCUMAR [Concomitant]
     Route: 065
  5. METOBETA [Concomitant]
  6. BEZAFIBRAT [Concomitant]
  7. OMEPRAZOL [Concomitant]
  8. FOLIC ACID [Concomitant]
  9. TILIDIN [Concomitant]

REACTIONS (2)
  - Herpes zoster [Not Recovered/Not Resolved]
  - Post herpetic neuralgia [Not Recovered/Not Resolved]
